FAERS Safety Report 5853924-2 (Version None)
Quarter: 2008Q3

REPORT INFORMATION
  Report Type: 
  Country: None (occurrence: None)
  Receive Date: 20080822
  Receipt Date: 20080814
  Transmission Date: 20090109
  Serious: Yes (Other)
  Sender: FDA-Public Use
  Company Number: A0743992A

PATIENT
  Age: 71 Year
  Sex: Male

DRUGS (1)
  1. REQUIP [Suspect]
     Indication: PARKINSON'S DISEASE
     Route: 048
     Dates: start: 20080501

REACTIONS (4)
  - BALANCE DISORDER [None]
  - DYSSTASIA [None]
  - PARKINSONISM [None]
  - WALKING AID USER [None]
